FAERS Safety Report 11685577 (Version 2)
Quarter: 2015Q4

REPORT INFORMATION
  Report Type: Report from Study
  Country: DE (occurrence: DE)
  Receive Date: 20151030
  Receipt Date: 20151215
  Transmission Date: 20160304
  Serious: Yes (Death, Hospitalization)
  Sender: FDA-Public Use
  Company Number: DE-JNJFOC-20151016904

PATIENT
  Age: 8 Decade
  Sex: Male
  Weight: 80 kg

DRUGS (3)
  1. ABIRATERONE ACETATE [Suspect]
     Active Substance: ABIRATERONE ACETATE
     Indication: PROSTATE CANCER METASTATIC
     Route: 048
     Dates: start: 20140717, end: 20140819
  2. METFORMIN [Concomitant]
     Active Substance: METFORMIN HYDROCHLORIDE
     Indication: TYPE 2 DIABETES MELLITUS
     Route: 048
  3. PREDNISOLONE. [Concomitant]
     Active Substance: PREDNISOLONE
     Indication: PROSTATE CANCER METASTATIC
     Route: 048
     Dates: start: 20140717, end: 20140819

REACTIONS (3)
  - Disease progression [Fatal]
  - General physical health deterioration [Fatal]
  - Haemothorax [Not Recovered/Not Resolved]

NARRATIVE: CASE EVENT DATE: 20140819
